FAERS Safety Report 23213038 (Version 1)
Quarter: 2023Q4

REPORT INFORMATION
  Report Type: Spontaneous
  Country: US (occurrence: US)
  Receive Date: 20231121
  Receipt Date: 20231121
  Transmission Date: 20240109
  Serious: Yes (Other)
  Sender: FDA-Public Use
  Company Number: US-MYLANLABS-2023M1124114

PATIENT
  Age: 39 Year
  Sex: Female

DRUGS (10)
  1. ETOPOSIDE [Suspect]
     Active Substance: ETOPOSIDE
     Indication: Adrenocortical carcinoma
     Dosage: UNK, CYCLE (EDP-MITOTANE, COMPLETED 4 CYCLES)
     Route: 065
  2. ETOPOSIDE [Suspect]
     Active Substance: ETOPOSIDE
     Dosage: UNK (COMPLETED ONE MONTH)
     Route: 065
  3. DOXORUBICIN [Suspect]
     Active Substance: DOXORUBICIN
     Indication: Adrenocortical carcinoma
     Dosage: UNK, CYCLE (EDP-MITOTANE, COMPLETED 4 CYCLES)
     Route: 065
  4. CISPLATIN [Suspect]
     Active Substance: CISPLATIN
     Indication: Adrenocortical carcinoma
     Dosage: UNK, CYCLE (EDP-MITOTANE, COMPLETED 4 CYCLES)
     Route: 065
  5. CISPLATIN [Suspect]
     Active Substance: CISPLATIN
     Dosage: UNK (COMPLETED ONE MONTH)
     Route: 065
  6. MITOTANE [Suspect]
     Active Substance: MITOTANE
     Indication: Adrenocortical carcinoma
     Dosage: UNK (EDP-MITOTANE, COMPLETED 4 CYCLES)
     Route: 065
  7. RUCAPARIB [Suspect]
     Active Substance: RUCAPARIB
     Indication: Adrenocortical carcinoma
     Dosage: UNK
     Route: 065
  8. IPILIMUMAB [Suspect]
     Active Substance: IPILIMUMAB
     Indication: Adrenocortical carcinoma
     Dosage: UNK, CYCLE (TWO CYCLES)
     Route: 065
  9. NIVOLUMAB [Suspect]
     Active Substance: NIVOLUMAB
     Indication: Adrenocortical carcinoma
     Dosage: UNK, CYCLE (TWO CYCLES)
     Route: 065
  10. METYRAPONE [Concomitant]
     Active Substance: METYRAPONE
     Indication: Cortisol free urine increased
     Dosage: UNK
     Route: 065

REACTIONS (2)
  - Disease progression [Unknown]
  - Drug ineffective [Unknown]
